FAERS Safety Report 9504605 (Version 1)
Quarter: 2013Q3

REPORT INFORMATION
  Report Type: Spontaneous
  Country: US (occurrence: US)
  Receive Date: 20130906
  Receipt Date: 20130906
  Transmission Date: 20140515
  Serious: Yes (Life-Threatening, Hospitalization, Other)
  Sender: FDA-Public Use
  Company Number: US-TAKEDA-2013TUS000140

PATIENT
  Sex: 0

DRUGS (3)
  1. COLCHICINE [Suspect]
     Indication: BEHCET^S SYNDROME
     Dosage: 0.6 MG, EVERY 12 HOURS
  2. CLARITHROMYCIN [Interacting]
     Dosage: 500 MG, EVERY 12 HOURS
  3. METHOTREXATE [Suspect]

REACTIONS (6)
  - Drug interaction [Unknown]
  - Rhabdomyolysis [Unknown]
  - Nasal congestion [Unknown]
  - Cough [Unknown]
  - Sinusitis [Unknown]
  - Hepatic enzyme increased [Recovering/Resolving]
